FAERS Safety Report 19656179 (Version 1)
Quarter: 2021Q3

REPORT INFORMATION
  Report Type: Spontaneous
  Country: US (occurrence: US)
  Receive Date: 20210804
  Receipt Date: 20210804
  Transmission Date: 20211014
  Serious: Yes (Hospitalization)
  Sender: FDA-Public Use
  Company Number: None

PATIENT
  Age: 7 Year
  Sex: Male

DRUGS (1)
  1. ABILIFY [Suspect]
     Active Substance: ARIPIPRAZOLE

REACTIONS (6)
  - Dystonia [None]
  - Incorrect dose administered [None]
  - Somnolence [None]
  - Muscle twitching [None]
  - Neck pain [None]
  - Product prescribing error [None]

NARRATIVE: CASE EVENT DATE: 20210730
